FAERS Safety Report 14919874 (Version 2)
Quarter: 2018Q2

REPORT INFORMATION
  Report Type: Spontaneous
  Country: US (occurrence: US)
  Receive Date: 20180521
  Receipt Date: 20180529
  Transmission Date: 20180711
  Serious: Yes (Hospitalization)
  Sender: FDA-Public Use
  Company Number: US-VIFOR (INTERNATIONAL) INC.-VIT-2018-04625

PATIENT
  Age: 61 Year
  Sex: Female

DRUGS (10)
  1. SIMVASTATIN. [Concomitant]
     Active Substance: SIMVASTATIN
  2. ACETYLSALICYLIC ACID [Concomitant]
     Active Substance: ASPIRIN
  3. WARFARIN SODIUM. [Concomitant]
     Active Substance: WARFARIN SODIUM
  4. SEVELAMER CARBONATE. [Concomitant]
     Active Substance: SEVELAMER CARBONATE
  5. LITHIUM CARBONATE. [Concomitant]
     Active Substance: LITHIUM CARBONATE
  6. VELTASSA [Suspect]
     Active Substance: PATIROMER
     Indication: HYPERKALAEMIA
     Route: 048
     Dates: start: 20180310
  7. VELTASSA [Suspect]
     Active Substance: PATIROMER
     Route: 048
     Dates: start: 20180425
  8. SENSIPAR [Concomitant]
     Active Substance: CINACALCET HYDROCHLORIDE
  9. LORAZEPAM. [Concomitant]
     Active Substance: LORAZEPAM
  10. LEVOTHYROXINE SODIUM. [Concomitant]
     Active Substance: LEVOTHYROXINE SODIUM

REACTIONS (4)
  - Haemoglobin decreased [Unknown]
  - Hypotension [Unknown]
  - Transient ischaemic attack [Unknown]
  - Drug dose omission [Unknown]

NARRATIVE: CASE EVENT DATE: 20180501
